FAERS Safety Report 18234826 (Version 1)
Quarter: 2020Q3

REPORT INFORMATION
  Report Type: Spontaneous
  Country: DE (occurrence: IT)
  Receive Date: 20200904
  Receipt Date: 20200904
  Transmission Date: 20201103
  Serious: Yes (Other)
  Sender: FDA-Public Use
  Company Number: IT-ELI_LILLY_AND_COMPANY-IT202009001901

PATIENT
  Age: 64 Year
  Sex: Male
  Weight: 48 kg

DRUGS (3)
  1. PACLITAXEL ACCORD [Concomitant]
     Active Substance: PACLITAXEL
     Indication: LARYNGEAL SQUAMOUS CELL CARCINOMA
     Dosage: 80 MG/M2, UNK
     Route: 042
     Dates: start: 20200610, end: 20200619
  2. ERBITUX [Suspect]
     Active Substance: CETUXIMAB
     Indication: LARYNGEAL SQUAMOUS CELL CARCINOMA
     Dosage: 250 MG/M2, UNK
     Route: 042
     Dates: start: 20200610, end: 20200619
  3. CARBOPLATINO TEVA [Concomitant]
     Active Substance: CARBOPLATIN
     Indication: LARYNGEAL SQUAMOUS CELL CARCINOMA
     Dosage: 160 MG, UNK
     Route: 042
     Dates: start: 20200610, end: 20200619

REACTIONS (2)
  - Dermatitis [Recovering/Resolving]
  - Erythema [Recovering/Resolving]

NARRATIVE: CASE EVENT DATE: 20200626
